FAERS Safety Report 7342218-4 (Version None)
Quarter: 2011Q1

REPORT INFORMATION
  Report Type: 
  Country: None (occurrence: None)
  Receive Date: 20110310
  Receipt Date: 20110224
  Transmission Date: 20110831
  Serious: No
  Sender: FDA-Public Use
  Company Number: PHHY2010US49887

PATIENT
  Sex: Female
  Weight: 54 kg

DRUGS (2)
  1. EXJADE [Suspect]
     Indication: POLYCYTHAEMIA VERA
     Dosage: 1125 MG DAILY
     Route: 048
     Dates: start: 20091202, end: 20100702
  2. EXJADE [Suspect]
     Dosage: UNK
     Route: 048
     Dates: end: 20110131

REACTIONS (1)
  - NO ADVERSE EVENT [None]
